FAERS Safety Report 20172819 (Version 1)
Quarter: 2021Q4

REPORT INFORMATION
  Report Type: Spontaneous
  Country: FR (occurrence: FR)
  Receive Date: 20211211
  Receipt Date: 20211211
  Transmission Date: 20220303
  Serious: Yes (Other)
  Sender: FDA-Public Use
  Company Number: None

PATIENT
  Age: 73 Year
  Sex: Female
  Weight: 85 kg

DRUGS (8)
  1. CLOPIDOGREL HYDROCHLORIDE [Suspect]
     Active Substance: CLOPIDOGREL HYDROCHLORIDE
     Indication: Angioplasty
     Dosage: 75 MILLIGRAM DAILY; N THE MORNING
     Route: 048
     Dates: start: 202106
  2. LOVENOX [Suspect]
     Active Substance: ENOXAPARIN SODIUM
     Indication: Angioplasty
     Dosage: 2 DOSAGE FORMS DAILY; 1 INJECTION MORNING AND EVENING
     Route: 058
     Dates: start: 20210702, end: 20210803
  3. ASPIRIN [Suspect]
     Active Substance: ASPIRIN
     Indication: Angioplasty
     Dosage: 75 MILLIGRAM DAILY; IN THE MORNING, BAYER ACETYLSALICYLIC ACID
     Route: 048
     Dates: start: 202106
  4. DOLIPRANE [Concomitant]
     Active Substance: ACETAMINOPHEN
     Dosage: 3 DOSAGE FORMS DAILY; 3 CP / DAY
     Route: 048
  5. NITROUS OXIDE [Concomitant]
     Active Substance: NITROUS OXIDE
     Dosage: AT THE TIME OF TREATMENT, NITROUS OXIDE MEDICINAL AIR LIQUIDE SANTE FRANCE, GAS FOR INHALATION, IN B
     Route: 048
  6. RAMIPRIL [Concomitant]
     Active Substance: RAMIPRIL
     Dosage: 1 DOSAGE FORMS DAILY; 1 TAB IN THE MORNING
     Route: 048
  7. ATORVASTATIN [Concomitant]
     Active Substance: ATORVASTATIN
     Dosage: 1 DOSAGE FORMS DAILY; 1 TABLET IN THE EVENING ATORVASTATIN ACCORD 40 MG FILM-COATED TABLETS
     Route: 042
  8. VERAPAMIL HYDROCHLORIDE [Concomitant]
     Active Substance: VERAPAMIL HYDROCHLORIDE
     Dosage: 1 DOSAGE FORMS DAILY; 1 TAB IN THE MORNING, ISOPTINE 120 MG HARD CAPSULE
     Route: 048

REACTIONS (1)
  - Haemarthrosis [Recovering/Resolving]

NARRATIVE: CASE EVENT DATE: 20210727
